FAERS Safety Report 13731650 (Version 4)
Quarter: 2018Q1

REPORT INFORMATION
  Report Type: Spontaneous
  Country: AT (occurrence: AT)
  Receive Date: 20170707
  Receipt Date: 20180308
  Transmission Date: 20180508
  Serious: Yes (Hospitalization)
  Sender: FDA-Public Use
  Company Number: AT-ELI_LILLY_AND_COMPANY-AT201707001915

PATIENT
  Age: 44 Year
  Sex: Male
  Weight: 70 kg

DRUGS (22)
  1. TEMESTA                            /00273201/ [Concomitant]
     Active Substance: LORAZEPAM
     Dosage: 12.5 MG, UNKNOWN
     Route: 065
     Dates: end: 20170601
  2. ZYPREXA [Suspect]
     Active Substance: OLANZAPINE
     Indication: PRODUCT USED FOR UNKNOWN INDICATION
     Dosage: 10 MG, UNKNOWN
     Route: 048
     Dates: start: 20170314, end: 20170314
  3. DEXDOR [Suspect]
     Active Substance: DEXMEDETOMIDINE HYDROCHLORIDE
     Dosage: UNK UNK, UNKNOWN
     Route: 042
     Dates: start: 20170422, end: 20170423
  4. QUILONORM                          /00033702/ [Suspect]
     Active Substance: LITHIUM CARBONATE
     Indication: PRODUCT USED FOR UNKNOWN INDICATION
     Dosage: 900 MG, UNKNOWN
     Route: 048
     Dates: end: 20170313
  5. DEPAKINE                           /00228501/ [Concomitant]
     Active Substance: VALPROIC ACID
     Indication: PRODUCT USED FOR UNKNOWN INDICATION
     Dosage: 400 MG, UNKNOWN
     Route: 065
     Dates: start: 20170317, end: 20170317
  6. UNASYN [Concomitant]
     Active Substance: AMPICILLIN SODIUM\SULBACTAM SODIUM
     Dosage: 1200 MG, UNKNOWN
     Route: 065
     Dates: start: 20170318, end: 20170325
  7. DESMOPRESSIN [Concomitant]
     Active Substance: DESMOPRESSIN
     Dosage: 8 UG, UNKNOWN
     Route: 065
  8. DEXDOR [Suspect]
     Active Substance: DEXMEDETOMIDINE HYDROCHLORIDE
     Indication: AGITATION
     Dosage: UNK UNK, UNKNOWN
     Route: 042
     Dates: start: 20170314, end: 20170329
  9. DEPAKINE                           /00228501/ [Concomitant]
     Active Substance: VALPROIC ACID
     Dosage: 2000 MG, UNKNOWN
     Route: 065
     Dates: start: 20170324
  10. QUILONORM                          /00033702/ [Suspect]
     Active Substance: LITHIUM CARBONATE
     Dosage: 1800 MG, DAILY
     Route: 048
     Dates: start: 20170316, end: 20170318
  11. TEMESTA                            /00273201/ [Concomitant]
     Active Substance: LORAZEPAM
     Indication: PRODUCT USED FOR UNKNOWN INDICATION
     Dosage: 8 MG, UNKNOWN
     Route: 065
     Dates: start: 20170406
  12. SEROQUEL [Concomitant]
     Active Substance: QUETIAPINE FUMARATE
     Dosage: 900 MG, UNKNOWN
     Route: 065
     Dates: end: 20170315
  13. ZYPREXA [Suspect]
     Active Substance: OLANZAPINE
     Dosage: 25 MG, UNKNOWN
     Route: 048
     Dates: start: 20170323, end: 20170407
  14. ZYPREXA [Suspect]
     Active Substance: OLANZAPINE
     Dosage: 30 MG, UNKNOWN
     Route: 048
     Dates: start: 20170408
  15. DEXDOR [Suspect]
     Active Substance: DEXMEDETOMIDINE HYDROCHLORIDE
     Dosage: UNK UNK, UNKNOWN
     Route: 042
     Dates: start: 2017, end: 2017
  16. CISORDINOL                         /00876702/ [Concomitant]
     Active Substance: ZUCLOPENTHIXOL
     Indication: PRODUCT USED FOR UNKNOWN INDICATION
     Dosage: 25 MG, UNKNOWN
     Route: 065
     Dates: start: 20170414
  17. ABILIFY [Concomitant]
     Active Substance: ARIPIPRAZOLE
     Indication: PRODUCT USED FOR UNKNOWN INDICATION
     Dosage: 10 MG, UNKNOWN
     Route: 030
     Dates: start: 20170314, end: 20170318
  18. SEROQUEL [Concomitant]
     Active Substance: QUETIAPINE FUMARATE
     Indication: PRODUCT USED FOR UNKNOWN INDICATION
     Dosage: 300 MG, UNKNOWN
     Route: 065
     Dates: start: 20170313
  19. QUILONORM                          /00033702/ [Suspect]
     Active Substance: LITHIUM CARBONATE
     Dosage: 1350 MG, UNKNOWN
     Route: 048
     Dates: start: 20170314, end: 20170315
  20. CISORDINOL                         /00876702/ [Concomitant]
     Active Substance: ZUCLOPENTHIXOL
     Dosage: 50 MG, UNKNOWN
     Route: 065
     Dates: end: 20170601
  21. UNASYN [Concomitant]
     Active Substance: AMPICILLIN SODIUM\SULBACTAM SODIUM
     Indication: INFECTION
     Dosage: 3000 MG, UNKNOWN
     Route: 065
     Dates: start: 20170317, end: 20170317
  22. DESMOPRESSIN [Concomitant]
     Active Substance: DESMOPRESSIN
     Indication: NEPHROGENIC DIABETES INSIPIDUS
     Dosage: 2 UG, UNKNOWN
     Route: 065
     Dates: start: 20170404, end: 20170428

REACTIONS (6)
  - Agitation [Unknown]
  - Toxicity to various agents [Recovered/Resolved]
  - Nephrogenic diabetes insipidus [Recovered/Resolved]
  - Hyperthermia [Recovered/Resolved]
  - Pneumonia aspiration [Recovered/Resolved]
  - Overdose [Unknown]

NARRATIVE: CASE EVENT DATE: 20170314
